FAERS Safety Report 5933828-7 (Version None)
Quarter: 2008Q4

REPORT INFORMATION
  Report Type: 
  Country: None (occurrence: None)
  Receive Date: 20081024
  Receipt Date: 20081013
  Transmission Date: 20090506
  Serious: Yes (Other)
  Sender: FDA-Public Use
  Company Number: 230598K08USA

PATIENT
  Age: 34 Year
  Sex: Female
  Weight: 88 kg

DRUGS (2)
  1. REBIF [Suspect]
     Indication: MULTIPLE SCLEROSIS
     Dosage: 22 MCG, 3 IN 1 WEEKS, SUBCUTANEOUS
     Route: 058
     Dates: start: 20080918
  2. IBUPROFEN [Concomitant]

REACTIONS (7)
  - CONDITION AGGRAVATED [None]
  - DIZZINESS [None]
  - DYSPNOEA [None]
  - EPILEPSY [None]
  - HOT FLUSH [None]
  - MULTIPLE SCLEROSIS [None]
  - PALPITATIONS [None]
